FAERS Safety Report 6977157-1 (Version None)
Quarter: 2010Q3

REPORT INFORMATION
  Report Type: 
  Country: None (occurrence: None)
  Receive Date: 20100910
  Receipt Date: 20100830
  Transmission Date: 20110219
  Serious: Yes (Hospitalization, Other)
  Sender: FDA-Public Use
  Company Number: JP-PFIZER INC-2010111559

PATIENT
  Age: 75 Year
  Sex: Female

DRUGS (1)
  1. SEIBULE [Suspect]
     Route: 048

REACTIONS (1)
  - PNEUMATOSIS INTESTINALIS [None]
